FAERS Safety Report 11359284 (Version 3)
Quarter: 2015Q3

REPORT INFORMATION
  Report Type: Spontaneous
  Country: US (occurrence: US)
  Receive Date: 20150807
  Receipt Date: 20150924
  Transmission Date: 20151125
  Serious: Yes (Death, Other)
  Sender: FDA-Public Use
  Company Number: US-PFIZER INC-2015261949

PATIENT
  Age: 78 Year
  Sex: Male

DRUGS (20)
  1. KLONOPIN [Concomitant]
     Active Substance: CLONAZEPAM
     Indication: ANXIETY
     Dosage: 0.25 MG OR 0.5 MG (ONCE OR TWICE A DAY)
     Route: 048
  2. ASPIRIN. [Concomitant]
     Active Substance: ASPIRIN
     Dosage: 81 MG, 1X/DAY (81 MG TABS, 1 BY MOUTH EVERY AM)
     Route: 048
  3. TRIAMCINOLONE ACETONIDE. [Concomitant]
     Active Substance: TRIAMCINOLONE ACETONIDE
     Indication: RASH
     Dosage: 0.1% CREAM APPLIED TO AFFECTED AREA TWICE DAILY AS NEEDED
  4. KLOR-CON [Concomitant]
     Active Substance: POTASSIUM CHLORIDE
     Dosage: 10 MEQ, DAILY
     Route: 048
  5. PROTONIX [Concomitant]
     Active Substance: PANTOPRAZOLE SODIUM
     Dosage: 40 MG, 2X/DAY
     Route: 048
  6. CALCIUM 600 + D3 PLUS MINERALS [Concomitant]
     Dosage: 1 DF, 2X/DAY (600-400 MG-UNIT TABS)
  7. COUMADIN [Concomitant]
     Active Substance: WARFARIN SODIUM
     Dosage: UNK
     Dates: end: 20140507
  8. MAGNESIUM CITRATE. [Concomitant]
     Active Substance: MAGNESIUM CITRATE
     Dosage: 400 MG, 1X/DAY
  9. BUMEX [Concomitant]
     Active Substance: BUMETANIDE
     Indication: OEDEMA PERIPHERAL
     Dosage: 1 MG, 2X/DAY
     Route: 048
  10. PREDNISONE. [Concomitant]
     Active Substance: PREDNISONE
     Dosage: UNK
  11. MUCINEX EXPECTORANT [Concomitant]
     Dosage: 1 DF, 2X/DAY
     Route: 048
  12. OXYGEN. [Concomitant]
     Active Substance: OXYGEN
     Dosage: 2L CONT WITH EXERTION- SMALLEST PLEASE
  13. BENEFIBER [Concomitant]
     Active Substance: STARCH, WHEAT
     Dosage: 1 TBSP DAILY
     Route: 048
  14. IPRATROPIUM BROMIDE. [Concomitant]
     Active Substance: IPRATROPIUM BROMIDE
     Dosage: 0.03% SOLUTION, 1 VIAL 3X/DAY (1 VIAL VIA NEB THREE TIMES DAILY)
     Route: 055
  15. METOPROLOL SUCCINATE. [Concomitant]
     Active Substance: METOPROLOL SUCCINATE
     Dosage: 50 MG, 1X/DAY (1 BY MOUTH QAM)
     Route: 048
  16. RANITIDINE HCL [Concomitant]
     Active Substance: RANITIDINE HYDROCHLORIDE
     Dosage: 300 MG, 1X/DAY (150 MG, TAKE 2 TABLETS BY MOUTH AT BEDTIME)
     Route: 048
  17. KLONOPIN [Concomitant]
     Active Substance: CLONAZEPAM
     Indication: DYSPNOEA
  18. ALBUTEROL SULFATE. [Concomitant]
     Active Substance: ALBUTEROL SULFATE
     Dosage: 0.083% SOLUTION 1 VIAL Y ((2.5 MG/3ML) 0.083% NEBU, 1 VIAL VIA NEB THREE TIMES DAILY)
  19. DIGOXIN. [Concomitant]
     Active Substance: DIGOXIN
     Dosage: 125 ?G, DAILY
     Route: 048
  20. REVATIO [Suspect]
     Active Substance: SILDENAFIL CITRATE
     Indication: PULMONARY HYPERTENSION
     Dosage: 20 MG, 3X/DAY
     Route: 048
     Dates: start: 20150428, end: 201507

REACTIONS (8)
  - Cardiac output decreased [Fatal]
  - Condition aggravated [Unknown]
  - Drug interaction [Unknown]
  - Aortic stenosis [Unknown]
  - Restrictive pulmonary disease [Unknown]
  - Pulmonary hypertension [Fatal]
  - Chronic obstructive pulmonary disease [Unknown]
  - Drug ineffective [Unknown]

NARRATIVE: CASE EVENT DATE: 2015
